FAERS Safety Report 21026183 (Version 1)
Quarter: 2022Q2

REPORT INFORMATION
  Report Type: Spontaneous
  Country: US (occurrence: US)
  Receive Date: 20220630
  Receipt Date: 20220630
  Transmission Date: 20220721
  Serious: No
  Sender: FDA-Public Use
  Company Number: US-SA-SAC20220628000758

PATIENT
  Sex: Female

DRUGS (1)
  1. DUPIXENT [Suspect]
     Active Substance: DUPILUMAB
     Indication: Asthma
     Dosage: 300 MG, QOW, 300 MG EVERY 14 DAYS
     Route: 058

REACTIONS (5)
  - Diarrhoea [Unknown]
  - Feeding disorder [Unknown]
  - Fatigue [Unknown]
  - Insomnia [Unknown]
  - Urticaria [Unknown]
